FAERS Safety Report 10740219 (Version 4)
Quarter: 2015Q1

REPORT INFORMATION
  Report Type: Spontaneous
  Country: DE (occurrence: DE)
  Receive Date: 20150127
  Receipt Date: 20150313
  Transmission Date: 20150721
  Serious: Yes (Hospitalization, Other)
  Sender: FDA-Public Use
  Company Number: DE-AUROBINDO PHARMA LTD, UK-AUR-APL-2014-06271

PATIENT
  Age: 41 Year
  Sex: Female

DRUGS (7)
  1. SERTRALINE [Suspect]
     Active Substance: SERTRALINE HYDROCHLORIDE
     Dosage: 150 MG, ONCE A DAY
     Route: 048
     Dates: start: 20130115, end: 20130613
  2. PANTOPRAZOLE [Concomitant]
     Active Substance: PANTOPRAZOLE SODIUM
     Indication: ABDOMINAL DISCOMFORT
     Dosage: 20 MG, UNK
     Route: 065
  3. DIAZEPAM. [Concomitant]
     Active Substance: DIAZEPAM
     Indication: ALCOHOL WITHDRAWAL SYNDROME
     Dosage: UNK
     Route: 065
  4. PROMETHAZINE [Concomitant]
     Active Substance: PROMETHAZINE\PROMETHAZINE HYDROCHLORIDE
     Indication: SLEEP DISORDER
     Dosage: 50 MG, EVERY NIGHT
     Route: 065
     Dates: start: 201212, end: 201301
  5. PREDNISOLONE. [Concomitant]
     Active Substance: PREDNISOLONE
     Indication: TINNITUS
     Dosage: 50 MG, DAILY IN LOWERING DOSAGE FOR 1 WEEK
     Route: 065
  6. SERTRALINE [Suspect]
     Active Substance: SERTRALINE HYDROCHLORIDE
     Indication: DEPRESSION
     Dosage: 100 MG, ONCE A DAY
     Route: 048
     Dates: start: 2008, end: 20130114
  7. MIRTAZAPINE. [Concomitant]
     Active Substance: MIRTAZAPINE
     Indication: SLEEP DISORDER
     Dosage: 15 MG, AT BED TIME
     Route: 048
     Dates: start: 201208

REACTIONS (3)
  - Micturition urgency [Recovered/Resolved]
  - Urinary incontinence [Recovered/Resolved]
  - Urinary incontinence [Recovered/Resolved]

NARRATIVE: CASE EVENT DATE: 201308
